FAERS Safety Report 11824376 (Version 2)
Quarter: 2015Q4

REPORT INFORMATION
  Report Type: Spontaneous
  Country: US (occurrence: IT)
  Receive Date: 20151210
  Receipt Date: 20151221
  Transmission Date: 20160305
  Serious: Yes (Hospitalization)
  Sender: FDA-Public Use
  Company Number: IT-FRI-1000081321

PATIENT
  Age: 72 Year
  Sex: Male

DRUGS (7)
  1. COTAREG [Concomitant]
     Active Substance: HYDROCHLOROTHIAZIDE\VALSARTAN
  2. ASENAPINE [Suspect]
     Active Substance: ASENAPINE
     Indication: BIPOLAR DISORDER
     Dosage: 10 MG
     Route: 060
     Dates: start: 20150101, end: 20150411
  3. DEPAKINE CHRONO [Suspect]
     Active Substance: VALPROATE SODIUM
     Indication: BIPOLAR DISORDER
     Dosage: 500 MG
     Route: 048
     Dates: start: 20150101, end: 20150411
  4. OLANZAPINE. [Suspect]
     Active Substance: OLANZAPINE
     Indication: BIPOLAR DISORDER
     Dosage: 5 MG
     Route: 048
     Dates: start: 20150101, end: 20150411
  5. RIVOTRIL [Concomitant]
     Active Substance: CLONAZEPAM
  6. SERENASE [Concomitant]
     Active Substance: HALOPERIDOL
  7. LITHIUM CARBONATE. [Concomitant]
     Active Substance: LITHIUM CARBONATE

REACTIONS (3)
  - Head injury [Recovering/Resolving]
  - Extrapyramidal disorder [Recovering/Resolving]
  - Apraxia [Recovering/Resolving]

NARRATIVE: CASE EVENT DATE: 20150411
